FAERS Safety Report 4618811-6 (Version None)
Quarter: 2005Q1

REPORT INFORMATION
  Report Type: 
  Country: None (occurrence: None)
  Receive Date: 20050323
  Receipt Date: 20050303
  Transmission Date: 20050727
  Serious: Yes (Hospitalization, Other)
  Sender: FDA-Public Use
  Company Number: USA030844502

PATIENT
  Age: 88 Year
  Sex: Female
  Weight: 55 kg

DRUGS (10)
  1. FORTEO [Suspect]
     Indication: OSTEOPOROSIS
     Dosage: 20 UG AT BEDTIME
     Dates: start: 20030701
  2. PLAVIX [Concomitant]
  3. PROTONIX [Concomitant]
  4. PRAVACHOL [Concomitant]
  5. AVAPRO [Concomitant]
  6. ATENOLOL [Concomitant]
  7. MINITRAN (GLYCERYL TRINITRATE) [Concomitant]
  8. ATIVAN [Concomitant]
  9. CALCIUM GLUCONATE [Concomitant]
  10. ISOSORBIDE [Concomitant]

REACTIONS (11)
  - BODY HEIGHT DECREASED [None]
  - CARDIAC FAILURE [None]
  - DIZZINESS [None]
  - HEADACHE [None]
  - LOSS OF CONSCIOUSNESS [None]
  - MUSCULAR WEAKNESS [None]
  - MYALGIA [None]
  - PAIN IN EXTREMITY [None]
  - PHARMACEUTICAL PRODUCT COMPLAINT [None]
  - PULMONARY OEDEMA [None]
  - SKIN CANCER [None]
